FAERS Safety Report 9104727 (Version 1)
Quarter: 2013Q1

REPORT INFORMATION
  Report Type: Spontaneous
  Country: US (occurrence: US)
  Receive Date: 20130220
  Receipt Date: 20130220
  Transmission Date: 20140127
  Serious: No
  Sender: FDA-Public Use
  Company Number: US-PFIZER INC-2013062136

PATIENT
  Age: 9 Year
  Sex: Female
  Weight: 36.28 kg

DRUGS (1)
  1. CHILDRENS ADVIL [Suspect]
     Indication: PYREXIA
     Dosage: TWO TABLESPOON ONCE
     Dates: start: 20130217

REACTIONS (1)
  - Eyelid oedema [Not Recovered/Not Resolved]
